FAERS Safety Report 5825428-4 (Version None)
Quarter: 2008Q3

REPORT INFORMATION
  Report Type: 
  Country: None (occurrence: None)
  Receive Date: 20080725
  Receipt Date: 20080725
  Transmission Date: 20090109
  Serious: Yes (Life-Threatening)
  Sender: FDA-Public Use
  Company Number: None

PATIENT
  Age: 83 Year
  Sex: Female
  Weight: 45 kg

DRUGS (1)
  1. GLYBURIDE [Suspect]
     Dosage: 5MG BID PO
     Route: 048

REACTIONS (2)
  - FALL [None]
  - HYPOGLYCAEMIA [None]
